FAERS Safety Report 6913574-3 (Version None)
Quarter: 2010Q3

REPORT INFORMATION
  Report Type: 
  Country: None (occurrence: None)
  Receive Date: 20100805
  Receipt Date: 20100805
  Transmission Date: 20110219
  Serious: Yes (Other)
  Sender: FDA-Public Use
  Company Number: None

PATIENT
  Sex: Female
  Weight: 71.2147 kg

DRUGS (1)
  1. HYDROXYCHLOROQUINE SULFATE [Suspect]
     Indication: SJOGREN'S SYNDROME
     Dosage: 200MG TWICE QD ORAL
     Route: 048
     Dates: start: 20100628, end: 20100708

REACTIONS (3)
  - BURNING SENSATION [None]
  - PRURITUS [None]
  - RASH GENERALISED [None]
